FAERS Safety Report 11072271 (Version 1)
Quarter: 2015Q2

REPORT INFORMATION
  Report Type: Spontaneous
  Country: None (occurrence: None)
  Receive Date: 20150427
  Receipt Date: 20150427
  Transmission Date: 20150821
  Serious: No
  Sender: FDA-Public Use
  Company Number: None

PATIENT
  Age: 31 Year

DRUGS (1)
  1. NUVARING [Suspect]
     Active Substance: ETHINYL ESTRADIOL\ETONOGESTREL
     Indication: CONTRACEPTION
     Dates: start: 20150415, end: 20150419

REACTIONS (6)
  - Feeling hot [None]
  - Nausea [None]
  - Vulvovaginal swelling [None]
  - Anxiety [None]
  - Sleep disorder [None]
  - Headache [None]

NARRATIVE: CASE EVENT DATE: 20150419
